FAERS Safety Report 22131123 (Version 1)
Quarter: 2023Q1

REPORT INFORMATION
  Report Type: Spontaneous
  Country: US (occurrence: None)
  Receive Date: 20230322
  Receipt Date: 20230322
  Transmission Date: 20230418
  Serious: Yes (Disabling, Other)
  Sender: FDA-Public Use
  Company Number: None

PATIENT
  Age: 43 Year
  Sex: Female

DRUGS (2)
  1. RINVOQ [Suspect]
     Active Substance: UPADACITINIB
     Indication: Ankylosing spondylitis
     Dosage: FREQUENCY : DAILY;?
     Route: 048
     Dates: end: 20230215
  2. RINVOQ [Suspect]
     Active Substance: UPADACITINIB
     Indication: Rheumatoid arthritis

REACTIONS (13)
  - Hypertension [None]
  - Rash [None]
  - Eczema [None]
  - Rash [None]
  - Rash [None]
  - Rash [None]
  - Rash pruritic [None]
  - Weight increased [None]
  - Skin striae [None]
  - Eye swelling [None]
  - Dizziness [None]
  - Heart rate increased [None]
  - Dyspnoea [None]
